FAERS Safety Report 18547879 (Version 1)
Quarter: 2020Q4

REPORT INFORMATION
  Report Type: Spontaneous
  Country: FR (occurrence: FR)
  Receive Date: 20201125
  Receipt Date: 20201125
  Transmission Date: 20210114
  Serious: Yes (Death)
  Sender: FDA-Public Use
  Company Number: FR-009507513-2011FRA011735

PATIENT
  Age: 74 Year
  Sex: Male
  Weight: 69 kg

DRUGS (9)
  1. TOUJEO [Concomitant]
     Active Substance: INSULIN GLARGINE
  2. LANSOPRAZOLE. [Concomitant]
     Active Substance: LANSOPRAZOLE
  3. SODIUM BICARBONATE. [Concomitant]
     Active Substance: SODIUM BICARBONATE
  4. CALCIDOSE [Concomitant]
  5. KEYTRUDA [Suspect]
     Active Substance: PEMBROLIZUMAB
     Indication: TRANSITIONAL CELL CARCINOMA
     Dosage: 200 MILLIGRAM, CYCLICAL
     Route: 042
     Dates: start: 20200730, end: 20201022
  6. SPECIAFOLDINE [Concomitant]
     Active Substance: FOLIC ACID
  7. RENVELA [Concomitant]
     Active Substance: SEVELAMER CARBONATE
  8. AMLOR [Concomitant]
     Active Substance: AMLODIPINE BESYLATE
  9. GALVUS [Concomitant]
     Active Substance: VILDAGLIPTIN

REACTIONS (1)
  - Interstitial lung disease [Fatal]

NARRATIVE: CASE EVENT DATE: 20201030
